FAERS Safety Report 9147300 (Version 2)
Quarter: 2013Q1

REPORT INFORMATION
  Report Type: Spontaneous
  Country: MX (occurrence: None)
  Receive Date: 20130213
  Receipt Date: 20130227
  Transmission Date: 20140127
  Serious: Yes (Death)
  Sender: FDA-Public Use
  Company Number: ENTC2013-0045

PATIENT
  Age: 61 Year
  Sex: Female

DRUGS (1)
  1. STALEVO [Suspect]
     Indication: PARKINSON^S DISEASE
     Dosage: 3 DF, (150/37.5/200 MG) DAILY
     Route: 048
     Dates: start: 201109

REACTIONS (2)
  - Aspiration bronchial [None]
  - Kidney infection [None]
